FAERS Safety Report 8141531-0 (Version None)
Quarter: 2012Q1

REPORT INFORMATION
  Report Type: 
  Country: None (occurrence: None)
  Receive Date: 20120103
  Receipt Date: 20111109
  Transmission Date: 20120608
  Serious: No
  Sender: FDA-Public Use
  Company Number: AE-2011-002611

PATIENT
  Age: 52 Year
  Sex: Female
  Weight: 65.318 kg

DRUGS (7)
  1. INCIVEK [Suspect]
     Dosage: 1500 MG (750 MG,2 IN 1 D),ORAL
     Route: 048
     Dates: start: 20111015
  2. CALCIUM CARBONATE [Concomitant]
  3. MULTI-VITAMINS [Concomitant]
  4. RIBAVIRIN [Concomitant]
  5. PEGINTERFERON (PEGINTERFERON ALFA-2A) [Concomitant]
  6. FISH OIL (FISH OIL) [Concomitant]
  7. URSODIOL [Concomitant]

REACTIONS (4)
  - DYSPNOEA [None]
  - RESTLESSNESS [None]
  - ANXIETY [None]
  - DIARRHOEA [None]
